FAERS Safety Report 17614761 (Version 1)
Quarter: 2020Q2

REPORT INFORMATION
  Report Type: Report from Study
  Country: JP (occurrence: JP)
  Receive Date: 20200402
  Receipt Date: 20200402
  Transmission Date: 20200713
  Serious: Yes (Other)
  Sender: FDA-Public Use
  Company Number: JP-VIFOR (INTERNATIONAL) INC.-VIT-2020-05046

PATIENT
  Age: 55 Year
  Sex: Female
  Weight: 57.1 kg

DRUGS (13)
  1. URSO [Concomitant]
     Active Substance: URSODIOL
     Route: 048
  2. ROCALTROL [Concomitant]
     Active Substance: CALCITRIOL
     Route: 048
     Dates: start: 20160628
  3. LAXOBERON [Concomitant]
     Active Substance: SODIUM PICOSULFATE
     Route: 048
  4. AMLODIPINE [Concomitant]
     Active Substance: AMLODIPINE BESYLATE
     Route: 048
     Dates: start: 20160629
  5. FLUITRAN [Concomitant]
     Active Substance: TRICHLORMETHIAZIDE
     Route: 048
  6. RISUMIC [Concomitant]
     Active Substance: AMEZINIUM METILSULFATE
     Route: 048
     Dates: start: 20170712
  7. MICARDIS [Concomitant]
     Active Substance: TELMISARTAN
     Route: 048
     Dates: start: 20160727
  8. VELPHORO [Suspect]
     Active Substance: SUCROFERRIC OXYHYDROXIDE
     Indication: HYPERPHOSPHATAEMIA
     Route: 048
     Dates: start: 20160617
  9. LASIX [Concomitant]
     Active Substance: FUROSEMIDE
     Indication: POLYURIA
     Route: 048
     Dates: start: 20171129
  10. EPOETIN ALFA [Concomitant]
     Active Substance: ERYTHROPOIETIN
     Dates: start: 20160624
  11. RENAGEL [Concomitant]
     Active Substance: SEVELAMER HYDROCHLORIDE
     Indication: HYPERPHOSPHATAEMIA
     Route: 048
     Dates: start: 20170906
  12. ONEALFA [Concomitant]
     Active Substance: ALFACALCIDOL
     Route: 048
  13. PRECIPITATED CALCIUM CARBONATE [Concomitant]
     Active Substance: CALCIUM CARBONATE
     Indication: MINERAL SUPPLEMENTATION
     Route: 048
     Dates: start: 20170906

REACTIONS (2)
  - Hyperparathyroidism secondary [Recovering/Resolving]
  - Osteoporosis [Recovering/Resolving]

NARRATIVE: CASE EVENT DATE: 20170612
